FAERS Safety Report 8960535 (Version 1)
Quarter: 2012Q4

REPORT INFORMATION
  Report Type: Spontaneous
  Country: GB (occurrence: None)
  Receive Date: 20121203
  Receipt Date: 20121203
  Transmission Date: 20130627
  Serious: Yes (Hospitalization)
  Sender: FDA-Public Use
  Company Number: GER/UKI/12/0026854

PATIENT
  Age: 54 Year

DRUGS (13)
  1. CIPROFLOXACIN (CIPROFLOXACIN) [Suspect]
     Indication: DRUG USE FOR UNKNOWN INDICATION
     Route: 048
     Dates: start: 20121027, end: 20121028
  2. LEVETIRACETAM [Suspect]
     Indication: EPILEPSY
     Dosage: 1 gm, 2 in 1 D
     Route: 048
  3. NITROFURANTOIN [Suspect]
     Indication: DRUG USE FOR UNKNOWN INDICATION
     Dosage: 100 mg, 4 in 1 D
     Route: 048
     Dates: start: 20121028, end: 20121029
  4. TRIMETHOPRIM [Suspect]
     Dosage: 200 mg, 2 in 1 D
     Route: 048
     Dates: start: 20121029, end: 20121030
  5. CHLORPHENAMINE [Concomitant]
  6. COLESTYRAMINE (COLESTYRAMINE) [Concomitant]
  7. CYCLIZINE (CYCLIZINE) [Concomitant]
  8. DOMPERIDONE (DOMPERIDONE) [Concomitant]
  9. LOPERAMIDE (LOPERAMIDE) [Concomitant]
  10. METOCLOPRAMIDE (METOCLOPRAMIDE) [Concomitant]
  11. OMEPRAZOLE (OMEPRAZOLE) [Concomitant]
  12. PARACETAMOL (PARACETAMOL) [Concomitant]
  13. TOPIRAMATE (TOPIRAMATE) [Concomitant]

REACTIONS (6)
  - Drug reaction with eosinophilia and systemic symptoms [None]
  - Eosinophilia [None]
  - Rash pustular [None]
  - Rash generalised [None]
  - White blood cell count increased [None]
  - Inflammatory marker increased [None]
